FAERS Safety Report 6467264-4 (Version None)
Quarter: 2009Q4

REPORT INFORMATION
  Report Type: 
  Country: None (occurrence: None)
  Receive Date: 20091202
  Receipt Date: 20091118
  Transmission Date: 20100525
  Serious: No
  Sender: FDA-Public Use
  Company Number: US-B.I. PHARMACEUTICALS,INC./RIDGEFIELD-2009-BP-12852BP

PATIENT
  Age: 77 Year
  Sex: Female

DRUGS (15)
  1. CATAPRES-TTS-1 [Suspect]
     Indication: HYPERTENSION
     Dosage: 0.1 MG
     Route: 061
     Dates: start: 20090301
  2. ATENOLOL [Concomitant]
  3. PREMARIN [Concomitant]
  4. VITAMIN B-12 [Concomitant]
  5. GABAPENTIN [Concomitant]
  6. AVAPRO [Concomitant]
  7. LISINOPRIL [Concomitant]
  8. ASACOL [Concomitant]
  9. NASACORT [Concomitant]
  10. NIZATIDINE [Concomitant]
  11. PATANOL [Concomitant]
  12. ACETAMINOPHEN [Concomitant]
  13. CALCIUM D [Concomitant]
  14. MULTI-VITAMIN [Concomitant]
  15. SYSTANE [Concomitant]

REACTIONS (3)
  - APPLICATION SITE PRURITUS [None]
  - SKIN IRRITATION [None]
  - URTICARIA [None]
